FAERS Safety Report 23516032 (Version 2)
Quarter: 2024Q1

REPORT INFORMATION
  Report Type: Spontaneous
  Country: NL (occurrence: NL)
  Receive Date: 20240213
  Receipt Date: 20240228
  Transmission Date: 20240410
  Serious: Yes (Other)
  Sender: FDA-Public Use
  Company Number: NL-LRB-00943957

PATIENT
  Age: 30 Year
  Sex: Female
  Weight: 87.5 kg

DRUGS (2)
  1. TRAMADOL [Suspect]
     Active Substance: TRAMADOL\TRAMADOL HYDROCHLORIDE
     Indication: Postoperative analgesia
     Dosage: 50 MILLIGRAM, TWO TIMES A DAY
     Route: 065
     Dates: start: 20210903
  2. PREGABALIN [Concomitant]
     Active Substance: PREGABALIN
     Indication: Product used for unknown indication
     Dosage: 75 MILLIGRAM
     Route: 065

REACTIONS (4)
  - Abortion spontaneous [Unknown]
  - Paternal drugs affecting foetus [Unknown]
  - Paternal exposure before pregnancy [Unknown]
  - Maternal exposure during pregnancy [Unknown]
